FAERS Safety Report 6498745-5 (Version None)
Quarter: 2009Q4

REPORT INFORMATION
  Report Type: 
  Country: None (occurrence: None)
  Receive Date: 20091215
  Receipt Date: 20091209
  Transmission Date: 20100525
  Serious: Yes (Hospitalization)
  Sender: FDA-Public Use
  Company Number: PL-ROCHE-665086

PATIENT
  Sex: Male
  Weight: 66 kg

DRUGS (6)
  1. BEVACIZUMAB [Suspect]
     Indication: RENAL CELL CARCINOMA
     Route: 042
     Dates: start: 20090727, end: 20091026
  2. BEVACIZUMAB [Suspect]
     Route: 042
     Dates: end: 20091117
  3. BEVACIZUMAB [Suspect]
     Route: 042
     Dates: start: 20091123, end: 20091207
  4. TEMSIROLIMUS [Suspect]
     Indication: RENAL CELL CARCINOMA
     Route: 042
     Dates: start: 20090727, end: 20091026
  5. TEMSIROLIMUS [Suspect]
     Route: 042
     Dates: end: 20091117
  6. TEMSIROLIMUS [Suspect]
     Route: 042
     Dates: start: 20091123, end: 20091207

REACTIONS (3)
  - HYPERCALCAEMIA [None]
  - RENAL FAILURE [None]
  - STOMATITIS [None]
